FAERS Safety Report 17275303 (Version 1)
Quarter: 2020Q1

REPORT INFORMATION
  Report Type: Spontaneous
  Country: US (occurrence: US)
  Receive Date: 20200116
  Receipt Date: 20200116
  Transmission Date: 20200409
  Serious: Yes (Hospitalization, Other)
  Sender: FDA-Public Use
  Company Number: US-ALVOGEN-2020-ALVOGEN-102380

PATIENT
  Age: 11 Month
  Sex: Female

DRUGS (1)
  1. OXYCODONE [Suspect]
     Active Substance: OXYCODONE
     Indication: PRODUCT USED FOR UNKNOWN INDICATION
     Route: 048

REACTIONS (10)
  - Somnolence [Unknown]
  - Hypophagia [Unknown]
  - Lethargy [Unknown]
  - Amylase increased [Recovered/Resolved]
  - Accidental exposure to product [Unknown]
  - Pancreatic disorder [Recovered/Resolved]
  - Sphincter of Oddi dysfunction [Recovered/Resolved]
  - Mental status changes [Recovering/Resolving]
  - Altered state of consciousness [Unknown]
  - Lipase increased [Recovered/Resolved]
